FAERS Safety Report 5840275-5 (Version None)
Quarter: 2008Q3

REPORT INFORMATION
  Report Type: 
  Country: None (occurrence: None)
  Receive Date: 20080811
  Receipt Date: 20080805
  Transmission Date: 20090109
  Serious: Yes (Hospitalization)
  Sender: FDA-Public Use
  Company Number: NL-AVENTIS-200817425GDDC

PATIENT
  Age: 71 Year
  Sex: Female
  Weight: 60 kg

DRUGS (5)
  1. ARAVA [Suspect]
     Indication: RHEUMATOID ARTHRITIS
     Route: 048
     Dates: start: 20070903, end: 20071201
  2. PREDNISON [Suspect]
     Indication: RHEUMATOID ARTHRITIS
     Dates: start: 20070228
  3. DICLOFENAC NATRIUM PCH [Concomitant]
     Dates: start: 20060815
  4. THYRAX                             /00068001/ [Concomitant]
     Dates: start: 20000101
  5. ALENDRONINEZUUR [Concomitant]
     Dates: start: 20070321

REACTIONS (3)
  - RESPIRATORY DISORDER [None]
  - TENDONITIS [None]
  - WEIGHT DECREASED [None]
